FAERS Safety Report 6759961-8 (Version None)
Quarter: 2010Q2

REPORT INFORMATION
  Report Type: 
  Country: None (occurrence: None)
  Receive Date: 20100604
  Receipt Date: 20100523
  Transmission Date: 20101027
  Serious: Yes (Hospitalization, Other)
  Sender: FDA-Public Use
  Company Number: 1-22733759

PATIENT
  Age: 56 Year
  Sex: Male
  Weight: 89.8122 kg

DRUGS (4)
  1. FENTANYL CITRATE [Suspect]
     Indication: PAIN
     Dosage: 50 MCG/HR, Q 24HRS, TRANSDERMAL
     Route: 062
     Dates: start: 20100423
  2. PROZAC [Concomitant]
  3. LISINOPRIL [Concomitant]
  4. COUMADIN [Concomitant]

REACTIONS (6)
  - CONTUSION [None]
  - DIZZINESS [None]
  - DRUG DISPENSING ERROR [None]
  - INAPPROPRIATE SCHEDULE OF DRUG ADMINISTRATION [None]
  - JOINT SPRAIN [None]
  - LOSS OF CONSCIOUSNESS [None]
